FAERS Safety Report 21063565 (Version 3)
Quarter: 2024Q4

REPORT INFORMATION
  Report Type: Spontaneous
  Country: TW (occurrence: TW)
  Receive Date: 20220711
  Receipt Date: 20241105
  Transmission Date: 20250114
  Serious: Yes (Hospitalization, Other)
  Sender: STRIDES
  Company Number: None

PATIENT
  Age: 57 Year
  Sex: Male

DRUGS (11)
  1. MYCOPHENOLATE MOFETIL [Interacting]
     Active Substance: MYCOPHENOLATE MOFETIL
     Indication: Renal transplant
     Dosage: 1 DOSAGE FORM, EVERY 12 HRS  (TABLET)
     Route: 065
     Dates: start: 2013
  2. MYCOPHENOLATE MOFETIL [Interacting]
     Active Substance: MYCOPHENOLATE MOFETIL
     Indication: Immunosuppressant drug therapy
  3. CYCLOSPORINE [Interacting]
     Active Substance: CYCLOSPORINE
     Indication: Renal transplant
     Dosage: 25 MILLIGRAM, BID (CAPSULE)
     Route: 065
     Dates: start: 2013, end: 2022
  4. CYCLOSPORINE [Interacting]
     Active Substance: CYCLOSPORINE
     Indication: Immunosuppressant drug therapy
     Dosage: 25 MILLIGRAM, DAILY
     Route: 065
  5. EVEROLIMUS [Interacting]
     Active Substance: EVEROLIMUS
     Indication: Renal transplant
     Dosage: 1 DOSAGE FORM, EVERY 12 HRS
     Route: 065
     Dates: start: 2013
  6. EVEROLIMUS [Interacting]
     Active Substance: EVEROLIMUS
     Indication: Immunosuppressant drug therapy
  7. METHYLPREDNISOLONE [Interacting]
     Active Substance: METHYLPREDNISOLONE
     Indication: Renal transplant
     Dosage: 1 DOSAGE FORM, EVERY 12 HRS
     Route: 065
     Dates: start: 2013
  8. METHYLPREDNISOLONE [Interacting]
     Active Substance: METHYLPREDNISOLONE
     Indication: Immunosuppressant drug therapy
  9. MODERNA COVID-19 VACCINE [Interacting]
     Active Substance: ELASOMERAN
     Indication: COVID-19 immunisation
     Dosage: 1 DOSAGE FORM, TOTAL
     Route: 065
     Dates: start: 20210811, end: 20210811
  10. MODERNA COVID-19 VACCINE [Interacting]
     Active Substance: ELASOMERAN
     Dosage: 1 DOSAGE FORM, TOTAL
     Route: 065
     Dates: start: 20211122, end: 20211122
  11. MODERNA COVID-19 VACCINE [Interacting]
     Active Substance: ELASOMERAN
     Dosage: 1 DOSAGE FORM, TOTAL
     Route: 065
     Dates: start: 20220115, end: 20220115

REACTIONS (4)
  - Pulmonary embolism [Recovering/Resolving]
  - Drug interaction [Recovered/Resolved]
  - Immunosuppressant drug level increased [Recovering/Resolving]
  - Blood creatinine increased [Recovering/Resolving]

NARRATIVE: CASE EVENT DATE: 20220210
